FAERS Safety Report 8510947 (Version 4)
Quarter: 2012Q4

REPORT INFORMATION
  Report Type: 
  Country: US (occurrence: US)
  Receive Date: 20120413
  Receipt Date: 20120829
  Transmission Date: 20130627
  Serious: Yes (Death, Other)
  Sender: FDA-Public Use
  Company Number: US-MPIJNJ-2012-02347

PATIENT
  Age: 62 Year
  Sex: Female
  Weight: 66.21 kg

DRUGS (18)
  1. VELCADE [Suspect]
     Indication: MULTIPLE MYELOMA
     Dosage: UNK
     Route: 042
     Dates: start: 20100322, end: 20100726
  2. RITUXIMAB [Concomitant]
     Indication: NON-HODGKIN^S LYMPHOMA
     Dosage: UNK
     Dates: start: 20100903
  3. CYCLOPHOSPHAMIDE [Concomitant]
     Indication: NON-HODGKIN^S LYMPHOMA
     Dosage: UNK
     Dates: start: 20100903
  4. DOXORUBICIN [Concomitant]
     Indication: NON-HODGKIN^S LYMPHOMA
     Dosage: UNK
     Dates: start: 20100903
  5. VINCRISTINE [Concomitant]
     Indication: NON-HODGKIN^S LYMPHOMA
     Dosage: UNK
     Dates: start: 20100903
  6. PREDNISONE [Concomitant]
     Indication: NON-HODGKIN^S LYMPHOMA
     Dosage: UNK
     Dates: start: 20100903
  7. NORCO [Concomitant]
     Indication: PRODUCT USED FOR UNKNOWN INDICATION
  8. LISINOPRIL [Concomitant]
     Indication: PRODUCT USED FOR UNKNOWN INDICATION
  9. HYDROCHLOROTHIAZIDE [Concomitant]
     Indication: PRODUCT USED FOR UNKNOWN INDICATION
  10. ZOLOFT                             /01011401/ [Concomitant]
     Indication: PRODUCT USED FOR UNKNOWN INDICATION
  11. ZOCOR [Concomitant]
     Indication: PRODUCT USED FOR UNKNOWN INDICATION
  12. METFORMIN [Concomitant]
     Indication: PRODUCT USED FOR UNKNOWN INDICATION
  13. RANITIDINE [Concomitant]
     Indication: PRODUCT USED FOR UNKNOWN INDICATION
  14. KCL [Concomitant]
     Indication: PRODUCT USED FOR UNKNOWN INDICATION
  15. ASPIRIN [Concomitant]
     Indication: PRODUCT USED FOR UNKNOWN INDICATION
  16. COLACE [Concomitant]
     Indication: PRODUCT USED FOR UNKNOWN INDICATION
  17. VITAMIN B6 [Concomitant]
     Indication: NEUROPATHY PERIPHERAL
  18. NEURONTIN [Concomitant]
     Indication: NEUROPATHY PERIPHERAL

REACTIONS (4)
  - Diffuse large B-cell lymphoma [Fatal]
  - Neuropathy peripheral [Recovered/Resolved]
  - Insomnia [Recovering/Resolving]
  - Arthralgia [Recovering/Resolving]
